FAERS Safety Report 5333848-X (Version None)
Quarter: 2007Q2

REPORT INFORMATION
  Report Type: 
  Country: None (occurrence: None)
  Receive Date: 20070306
  Receipt Date: 20060817
  Transmission Date: 20071010
  Serious: Yes (Hospitalization)
  Sender: FDA-Public Use
  Company Number: A03200605202

PATIENT
  Age: 63 Year
  Sex: Male

DRUGS (6)
  1. PLAVIX [Suspect]
     Dosage: ORAL
     Route: 048
     Dates: start: 20040805, end: 20040801
  2. CECLOR [Suspect]
     Dosage: ORAL
     Route: 048
     Dates: start: 20040801
  3. DOXAZOSIN MESYLATE [Concomitant]
  4. LOSARTAN + HCTZ [Concomitant]
  5. ACETAMINOPHEN, ASPIRIN AND CAFFEINE [Concomitant]
  6. SULINDAC [Concomitant]

REACTIONS (7)
  - ACUTE RESPIRATORY FAILURE [None]
  - HYPERSENSITIVITY [None]
  - HYPOAESTHESIA [None]
  - MENTAL STATUS CHANGES [None]
  - RENAL FAILURE [None]
  - SYNCOPE [None]
  - THROMBOTIC THROMBOCYTOPENIC PURPURA [None]
